FAERS Safety Report 4581666-2 (Version None)
Quarter: 2005Q1

REPORT INFORMATION
  Report Type: 
  Country: None (occurrence: None)
  Receive Date: 20050214
  Receipt Date: 20041214
  Transmission Date: 20050727
  Serious: Yes (Other)
  Sender: FDA-Public Use
  Company Number: US-GLAXOSMITHKLINE-A0537278A

PATIENT
  Sex: Female

DRUGS (5)
  1. LAMICTAL [Suspect]
     Route: 048
     Dates: start: 20040401, end: 20040801
  2. HYDROCHLOROTHIAZIDE [Concomitant]
     Indication: DRUG USE FOR UNKNOWN INDICATION
  3. TOPROL-XL [Concomitant]
     Indication: DRUG USE FOR UNKNOWN INDICATION
  4. VERAPAMIL [Concomitant]
     Indication: DRUG USE FOR UNKNOWN INDICATION
  5. ESTROGEN PATCH [Concomitant]
     Indication: DRUG USE FOR UNKNOWN INDICATION

REACTIONS (1)
  - RASH [None]
